FAERS Safety Report 6145249-5 (Version None)
Quarter: 2009Q2

REPORT INFORMATION
  Report Type: 
  Country: None (occurrence: None)
  Receive Date: 20090406
  Receipt Date: 20090401
  Transmission Date: 20091009
  Serious: Yes (Other)
  Sender: FDA-Public Use
  Company Number: FR-WYE-G03435209

PATIENT
  Age: 58 Year
  Sex: Male
  Weight: 80 kg

DRUGS (5)
  1. TYGACIL [Suspect]
     Indication: PERITONITIS
     Route: 042
     Dates: start: 20090320
  2. NEXIUM [Concomitant]
     Indication: PROPHYLAXIS AGAINST GASTROINTESTINAL ULCER
     Dosage: 20 MG DAILY
     Route: 042
     Dates: start: 20090312
  3. TEICOPLANIN [Concomitant]
     Indication: INFECTION
     Dosage: 400 MG DAILY
     Route: 042
     Dates: start: 20090312
  4. HEPARIN [Concomitant]
     Dosage: 25000 IU DAILY
     Route: 042
     Dates: start: 20090312
  5. EUPRESSYL [Concomitant]
     Indication: HYPERTENSION
     Dosage: 250 MG DAILY
     Route: 042
     Dates: start: 20090319

REACTIONS (1)
  - ATRIOVENTRICULAR BLOCK COMPLETE [None]
